FAERS Safety Report 7596896-5 (Version None)
Quarter: 2011Q3

REPORT INFORMATION
  Report Type: 
  Country: None (occurrence: None)
  Receive Date: 20110708
  Receipt Date: 20110705
  Transmission Date: 20111222
  Serious: Yes (Other)
  Sender: FDA-Public Use
  Company Number: US-PFIZER INC-2011150634

PATIENT
  Sex: Female

DRUGS (1)
  1. CEFDINIR [Suspect]
     Dosage: 300 MG, 2X/DAY
     Dates: start: 20110701, end: 20110704

REACTIONS (1)
  - BLOOD GLUCOSE INCREASED [None]
